FAERS Safety Report 9662369 (Version 1)
Quarter: 2013Q4

REPORT INFORMATION
  Report Type: Spontaneous
  Country: US (occurrence: US)
  Receive Date: 20131031
  Receipt Date: 20131031
  Transmission Date: 20140711
  Serious: No
  Sender: FDA-Public Use
  Company Number: US-PURDUE-USA-2011-0071419

PATIENT
  Sex: Male
  Weight: 102.95 kg

DRUGS (8)
  1. OXYCONTIN (NDA 22-272) [Suspect]
     Indication: BACK PAIN
     Dosage: 40 MG, Q12H
     Dates: end: 20110622
  2. OXYCODONE HYDROCHLORIDE (SIMILAR TO NDA 22-272) [Suspect]
     Dosage: 10 MG, Q8H
     Dates: end: 20110622
  3. COLACE [Suspect]
     Indication: PRODUCT USED FOR UNKNOWN INDICATION
     Dosage: 100 MG, PRN
  4. PREVPAC [Concomitant]
     Dosage: 1 DF, BID
  5. LISINOPRIL [Concomitant]
     Dosage: 10 MG, DAILY
  6. PLAVIX [Concomitant]
     Dosage: 75 MG, DAILY
  7. LOVASTATIN [Concomitant]
     Dosage: 20 MG, DAILY
  8. FLEXERIL                           /00428402/ [Concomitant]
     Dosage: 10 MG, TID

REACTIONS (4)
  - Abdominal distension [Unknown]
  - Pain [Unknown]
  - Abdominal pain upper [Unknown]
  - Drug ineffective [Unknown]
